FAERS Safety Report 7536598-4 (Version None)
Quarter: 2011Q2

REPORT INFORMATION
  Report Type: 
  Country: None (occurrence: None)
  Receive Date: 20110602
  Receipt Date: 20110517
  Transmission Date: 20111010
  Serious: Yes (Death)
  Sender: FDA-Public Use
  Company Number: B0722455A

PATIENT
  Age: 10 Year
  Sex: Female

DRUGS (3)
  1. VALPROATE SODIUM [Suspect]
  2. LAMOTRIGINE [Suspect]
     Indication: EPILEPSY
  3. ACETAZOLAMIDE [Suspect]

REACTIONS (1)
  - PANCREATITIS ACUTE [None]
